FAERS Safety Report 6327540-2 (Version None)
Quarter: 2009Q3

REPORT INFORMATION
  Report Type: 
  Country: None (occurrence: None)
  Receive Date: 20090825
  Receipt Date: 20090812
  Transmission Date: 20100115
  Serious: Yes (Hospitalization)
  Sender: FDA-Public Use
  Company Number: DE-ELI_LILLY_AND_COMPANY-DE200905003122

PATIENT
  Sex: Male
  Weight: 58 kg

DRUGS (1)
  1. STRATTERA [Suspect]
     Indication: ATTENTION DEFICIT/HYPERACTIVITY DISORDER
     Dosage: 10 MG, DAILY (1/D)
     Route: 048
     Dates: start: 20090324, end: 20090326

REACTIONS (4)
  - ACCIDENT [None]
  - SELF INJURIOUS BEHAVIOUR [None]
  - SUICIDAL IDEATION [None]
  - URTICARIA [None]
